FAERS Safety Report 13325758 (Version 5)
Quarter: 2017Q3

REPORT INFORMATION
  Report Type: Report from Study
  Country: None (occurrence: US)
  Receive Date: 20170310
  Receipt Date: 20170906
  Transmission Date: 20171127
  Serious: Yes (Other)
  Sender: FDA-Public Use
  Company Number: US-ABBVIE-17K-163-1895569-00

PATIENT
  Age: 63 Year
  Sex: Female
  Weight: 155.72 kg

DRUGS (12)
  1. HCTZ [Concomitant]
     Active Substance: HYDROCHLOROTHIAZIDE
     Indication: PRODUCT USED FOR UNKNOWN INDICATION
  2. FLEXERIL [Concomitant]
     Active Substance: CYCLOBENZAPRINE HYDROCHLORIDE
     Indication: PRODUCT USED FOR UNKNOWN INDICATION
  3. SERTRALINE [Concomitant]
     Active Substance: SERTRALINE HYDROCHLORIDE
     Indication: PRODUCT USED FOR UNKNOWN INDICATION
  4. LEVOTHYROXINE. [Concomitant]
     Active Substance: LEVOTHYROXINE
     Indication: PRODUCT USED FOR UNKNOWN INDICATION
  5. HUMIRA [Suspect]
     Active Substance: ADALIMUMAB
     Indication: RHEUMATOID ARTHRITIS
     Route: 058
     Dates: start: 2015
  6. CELEBREX [Concomitant]
     Active Substance: CELECOXIB
     Indication: PRODUCT USED FOR UNKNOWN INDICATION
  7. FUROSEMIDE. [Concomitant]
     Active Substance: FUROSEMIDE
     Indication: PRODUCT USED FOR UNKNOWN INDICATION
  8. HUMIRA [Suspect]
     Active Substance: ADALIMUMAB
     Route: 058
  9. HYDROCODONE [Concomitant]
     Active Substance: HYDROCODONE
     Indication: PRODUCT USED FOR UNKNOWN INDICATION
  10. COMPAZINE [Concomitant]
     Active Substance: PROCHLORPERAZINE MALEATE
     Indication: NAUSEA
  11. LOMOTIL [Concomitant]
     Active Substance: ATROPINE SULFATE\DIPHENOXYLATE HYDROCHLORIDE
     Indication: DIARRHOEA
  12. METHOTREXATE. [Suspect]
     Active Substance: METHOTREXATE
     Indication: PRODUCT USED FOR UNKNOWN INDICATION
     Route: 065

REACTIONS (20)
  - Renal fusion anomaly [Not Recovered/Not Resolved]
  - Weight increased [Recovering/Resolving]
  - Skin haemorrhage [Unknown]
  - Abdominal distension [Unknown]
  - Contusion [Unknown]
  - Splenomegaly [Not Recovered/Not Resolved]
  - Contusion [Not Recovered/Not Resolved]
  - Haematochezia [Recovered/Resolved]
  - Blood count abnormal [Unknown]
  - Limb injury [Unknown]
  - Laceration [Unknown]
  - Skin fragility [Not Recovered/Not Resolved]
  - Fall [Recovered/Resolved]
  - Liver disorder [Recovered/Resolved]
  - Hepatic fibrosis [Not Recovered/Not Resolved]
  - Head injury [Unknown]
  - Pneumonia [Unknown]
  - Pain [Not Recovered/Not Resolved]
  - Peripheral swelling [Unknown]
  - Pain [Not Recovered/Not Resolved]

NARRATIVE: CASE EVENT DATE: 2017
